FAERS Safety Report 5618371-7 (Version None)
Quarter: 2008Q1

REPORT INFORMATION
  Report Type: 
  Country: None (occurrence: None)
  Receive Date: 20080114
  Receipt Date: 20070326
  Transmission Date: 20080703
  Serious: Yes (Hospitalization)
  Sender: FDA-Public Use
  Company Number: A03200702409

PATIENT
  Sex: Female

DRUGS (3)
  1. PLAVIX [Suspect]
     Indication: CEREBROVASCULAR ACCIDENT
     Dosage: 75 MG QD, ORAL
     Route: 048
     Dates: start: 20050901
  2. PLAVIX [Suspect]
     Indication: TRANSIENT ISCHAEMIC ATTACK
     Dosage: 75 MG QD, ORAL
     Route: 048
     Dates: start: 20050901
  3. ACETYLSALICYLIC ACID SRT [Concomitant]

REACTIONS (1)
  - EPISTAXIS [None]
